FAERS Safety Report 5241454-0 (Version None)
Quarter: 2007Q1

REPORT INFORMATION
  Report Type: 
  Country: None (occurrence: None)
  Receive Date: 20070220
  Receipt Date: 20070214
  Transmission Date: 20070707
  Serious: Yes (Disabling, Other)
  Sender: FDA-Public Use
  Company Number: US-AVENTIS-200710986US

PATIENT

DRUGS (1)
  1. LOVENOX [Suspect]

REACTIONS (1)
  - EXTRADURAL HAEMATOMA [None]
